FAERS Safety Report 4914961-5 (Version None)
Quarter: 2006Q1

REPORT INFORMATION
  Report Type: 
  Country: None (occurrence: None)
  Receive Date: 20060215
  Receipt Date: 20060215
  Transmission Date: 20060701
  Serious: Yes (Hospitalization)
  Sender: FDA-Public Use
  Company Number: None

PATIENT
  Sex: Female

DRUGS (2)
  1. FLOXIN [Suspect]
     Indication: ANTI-INFECTIVE THERAPY
     Dosage: 400 MG PO X 1 DOSE
     Route: 048
     Dates: start: 20051206
  2. BIRTH CONTROL PILLS [Concomitant]

REACTIONS (3)
  - DYSPNOEA [None]
  - THROAT TIGHTNESS [None]
  - WHEEZING [None]
